FAERS Safety Report 5778117-9 (Version None)
Quarter: 2008Q2

REPORT INFORMATION
  Report Type: 
  Country: None (occurrence: None)
  Receive Date: 20080617
  Receipt Date: 20080617
  Transmission Date: 20081010
  Serious: Yes (Death)
  Sender: FDA-Public Use
  Company Number: None

PATIENT
  Age: 25 Year
  Sex: Male
  Weight: 90.7194 kg

DRUGS (18)
  1. GEODON [Suspect]
     Indication: ANXIETY
     Dosage: 300 MG 2X/DAY
     Dates: start: 20061117, end: 20061208
  2. GEODON [Suspect]
     Indication: BIPOLAR DISORDER
     Dosage: 300 MG 2X/DAY
     Dates: start: 20061117, end: 20061208
  3. DEPAKOTE [Suspect]
     Dosage: 300 MG 2X/DAY
     Dates: start: 20061117, end: 20061208
  4. LEXAPRO [Concomitant]
  5. SEROQUEL [Concomitant]
  6. BUSPIRONE HCL [Concomitant]
  7. TRAZODONE HCL [Concomitant]
  8. GABAPENTIN [Concomitant]
  9. ZYPREXA [Concomitant]
  10. LITHIUM CARBONATE [Concomitant]
  11. NURONTIN [Concomitant]
  12. TRAZODONE HCL [Concomitant]
  13. SEROQUEL [Concomitant]
  14. GEODON [Concomitant]
  15. DEPAKOTE [Concomitant]
  16. AMBIEN [Concomitant]
  17. LEVOTHYROZIN [Concomitant]
  18. BACTROBAN [Concomitant]

REACTIONS (1)
  - COMPLETED SUICIDE [None]
